FAERS Safety Report 6771221-8 (Version None)
Quarter: 2010Q2

REPORT INFORMATION
  Report Type: 
  Country: None (occurrence: None)
  Receive Date: 20100616
  Receipt Date: 20100608
  Transmission Date: 20101027
  Serious: Yes (Hospitalization, Other)
  Sender: FDA-Public Use
  Company Number: US-BAYER-201013777NA

PATIENT
  Age: 58 Year
  Sex: Male
  Weight: 70 kg

DRUGS (5)
  1. SORAFENIB [Suspect]
     Indication: PANCREATIC CARCINOMA
     Dosage: TOTAL DAILY DOSE: 400 MG  UNIT DOSE: 200 MG
     Route: 048
     Dates: start: 20100107, end: 20100127
  2. ERLOTINIB [Suspect]
     Indication: PANCREATIC CARCINOMA
     Dosage: TOTAL DAILY DOSE: 150 MG
     Dates: start: 20100107, end: 20100127
  3. FENTANYL [Concomitant]
     Dosage: 150 MCG/HR
     Dates: end: 20100201
  4. FENTANYL [Concomitant]
     Dosage: DOSE DECREASED TO 125 MCG/HR
     Dates: start: 20100201
  5. DILAUDID [Concomitant]
     Dosage: Q 8 HOURS
     Route: 048
     Dates: end: 20100201

REACTIONS (2)
  - CONFUSIONAL STATE [None]
  - DEHYDRATION [None]
